FAERS Safety Report 9652880 (Version 1)
Quarter: 2013Q4

REPORT INFORMATION
  Report Type: Spontaneous
  Country: DK (occurrence: DK)
  Receive Date: 20131029
  Receipt Date: 20131029
  Transmission Date: 20140711
  Serious: Yes (Life-Threatening, Hospitalization)
  Sender: FDA-Public Use
  Company Number: DK-TEVA-440909USA

PATIENT
  Age: 71 Year
  Sex: 0

DRUGS (6)
  1. LEVATOL [Suspect]
     Indication: B-CELL LYMPHOMA
     Dosage: UNKNOWN/D, 2.5MG/ML
     Route: 042
     Dates: start: 20130325, end: 201306
  2. MABTHERA [Suspect]
     Indication: B-CELL LYMPHOMA
     Route: 042
     Dates: start: 20130325, end: 201306
  3. DIURAL [Concomitant]
  4. CENTYL MED KALIUMKLORID [Concomitant]
     Indication: RENAL CYST
     Dates: start: 2006
  5. SELO-ZOK [Concomitant]
  6. PANTOTOC [Concomitant]

REACTIONS (2)
  - Pancytopenia [Recovered/Resolved]
  - Sepsis [Unknown]
